FAERS Safety Report 4816687-5 (Version None)
Quarter: 2005Q4

REPORT INFORMATION
  Report Type: 
  Country: None (occurrence: None)
  Receive Date: 20051101
  Receipt Date: 20051021
  Transmission Date: 20060501
  Serious: Yes (Other)
  Sender: FDA-Public Use
  Company Number: PHBS2005FI15788

PATIENT
  Age: 16 Year
  Sex: Female

DRUGS (2)
  1. LEPONEX [Suspect]
     Indication: SCHIZOPHRENIA
     Dosage: 125 MG/D
     Route: 048
  2. EFFEXOR [Concomitant]
     Dosage: 75 MG/D
     Route: 065

REACTIONS (2)
  - BULIMIA NERVOSA [None]
  - WEIGHT INCREASED [None]
